FAERS Safety Report 6182091-3 (Version None)
Quarter: 2009Q2

REPORT INFORMATION
  Report Type: 
  Country: None (occurrence: None)
  Receive Date: 20090507
  Receipt Date: 20090406
  Transmission Date: 20091009
  Serious: No
  Sender: FDA-Public Use
  Company Number: US-BAYER-200917586NA

PATIENT
  Sex: Female

DRUGS (1)
  1. CIPROFLOXACIN HCL [Suspect]
     Indication: URINARY TRACT INFECTION
     Dates: start: 20090404

REACTIONS (3)
  - ARTHRALGIA [None]
  - HYPOAESTHESIA [None]
  - PARAESTHESIA [None]
